FAERS Safety Report 9781730 (Version 1)
Quarter: 2013Q4

REPORT INFORMATION
  Report Type: Report from Study
  Country: CN (occurrence: CN)
  Receive Date: 20131224
  Receipt Date: 20131224
  Transmission Date: 20140711
  Serious: Yes (Other)
  Sender: FDA-Public Use
  Company Number: CN-ROCHE-1325092

PATIENT
  Age: 40 Year
  Sex: Female

DRUGS (2)
  1. PEGASYS [Suspect]
     Indication: HEPATITIS B
     Route: 058
     Dates: start: 201310, end: 201311
  2. PEGASYS [Suspect]
     Dosage: ACCORDING TO WBC TES RESULT
     Route: 058
     Dates: start: 201311

REACTIONS (1)
  - White blood cell count decreased [Unknown]
